FAERS Safety Report 5987560-4 (Version None)
Quarter: 2008Q4

REPORT INFORMATION
  Report Type: 
  Country: None (occurrence: None)
  Receive Date: 20081209
  Receipt Date: 20081201
  Transmission Date: 20090506
  Serious: Yes (Disabling)
  Sender: FDA-Public Use
  Company Number: IE-ASTRAZENECA-2008GB01982

PATIENT
  Age: 32 Year
  Sex: Female
  Weight: 45.4 kg

DRUGS (3)
  1. SEROQUEL [Suspect]
     Route: 048
  2. SEROQUEL [Suspect]
     Dosage: REDUCED
     Route: 048
  3. EPILIM [Concomitant]
     Dosage: STARTED SOME YEARS AGO
     Route: 048

REACTIONS (1)
  - SPEECH DISORDER [None]
